FAERS Safety Report 24685121 (Version 1)
Quarter: 2024Q4

REPORT INFORMATION
  Report Type: Spontaneous
  Country: CO (occurrence: CO)
  Receive Date: 20241202
  Receipt Date: 20241202
  Transmission Date: 20250115
  Serious: Yes (Hospitalization, Other)
  Sender: ACCORD
  Company Number: CO-Accord-458029

PATIENT
  Age: 21 Year
  Sex: Male
  Weight: 53 kg

DRUGS (1)
  1. CLONAZEPAM [Suspect]
     Active Substance: CLONAZEPAM
     Indication: Product used for unknown indication
     Dosage: 100 TABLETS
     Dates: start: 2023

REACTIONS (3)
  - Sinus bradycardia [Recovered/Resolved]
  - Cardiogenic shock [Unknown]
  - Toxicity to various agents [Unknown]

NARRATIVE: CASE EVENT DATE: 20230101
